FAERS Safety Report 16019397 (Version 1)
Quarter: 2019Q1

REPORT INFORMATION
  Report Type: Spontaneous
  Country: US (occurrence: US)
  Receive Date: 20190228
  Receipt Date: 20190228
  Transmission Date: 20190418
  Serious: No
  Sender: FDA-Public Use
  Company Number: US-TEVA-2019-US-1006637

PATIENT
  Age: 17 Year
  Sex: Female

DRUGS (1)
  1. KARIVA [Suspect]
     Active Substance: DESOGESTREL\ETHINYL ESTRADIOL
     Route: 065

REACTIONS (4)
  - Rash [Recovered/Resolved]
  - Drug eruption [Recovered/Resolved]
  - Product substitution issue [Unknown]
  - Hypersensitivity [Unknown]
